FAERS Safety Report 17062587 (Version 1)
Quarter: 2019Q4

REPORT INFORMATION
  Report Type: Spontaneous
  Country: GR (occurrence: GR)
  Receive Date: 20191122
  Receipt Date: 20191122
  Transmission Date: 20200122
  Serious: Yes (Death, Hospitalization, Other)
  Sender: FDA-Public Use
  Company Number: GR-AMGEN-GRCSP2019192659

PATIENT
  Age: 79 Year
  Sex: Female

DRUGS (10)
  1. INTERFERON ALFA 2B [Concomitant]
     Active Substance: INTERFERON ALFA-2B
     Indication: SYSTEMIC MASTOCYTOSIS
     Dosage: UNK
     Dates: start: 2019
  2. INTERFERON ALFA 2B [Concomitant]
     Active Substance: INTERFERON ALFA-2B
     Indication: MYELODYSPLASTIC SYNDROME
  3. FILGRASTIM [Suspect]
     Active Substance: FILGRASTIM
     Indication: SYSTEMIC MASTOCYTOSIS
     Dosage: UNK UNK, QWK
     Route: 065
     Dates: start: 2019
  4. OMEPRAZOLE. [Concomitant]
     Active Substance: OMEPRAZOLE
     Indication: MYELODYSPLASTIC SYNDROME
  5. METHYLPREDNISOLONE. [Concomitant]
     Active Substance: METHYLPREDNISOLONE
     Indication: SYSTEMIC MASTOCYTOSIS
     Dosage: UNK
     Dates: start: 2019
  6. OMEPRAZOLE. [Concomitant]
     Active Substance: OMEPRAZOLE
     Indication: SYSTEMIC MASTOCYTOSIS
     Dosage: UNK
     Dates: start: 2019
  7. METHYLPREDNISOLONE. [Concomitant]
     Active Substance: METHYLPREDNISOLONE
     Indication: MYELODYSPLASTIC SYNDROME
  8. FILGRASTIM [Suspect]
     Active Substance: FILGRASTIM
     Indication: MYELODYSPLASTIC SYNDROME
  9. ERYTHROPOIETIN [Suspect]
     Active Substance: ERYTHROPOIETIN
     Indication: SYSTEMIC MASTOCYTOSIS
     Dosage: UNK UNK, QWK
     Route: 065
     Dates: start: 2019
  10. ERYTHROPOIETIN [Suspect]
     Active Substance: ERYTHROPOIETIN
     Indication: MYELODYSPLASTIC SYNDROME

REACTIONS (7)
  - Haemorrhage [Fatal]
  - Thrombocytopenia [Fatal]
  - Neutropenia [Unknown]
  - Acute respiratory failure [Unknown]
  - Septic shock [Fatal]
  - Off label use [Unknown]
  - Respiratory tract infection [Fatal]

NARRATIVE: CASE EVENT DATE: 2019
